FAERS Safety Report 25401357 (Version 1)
Quarter: 2025Q2

REPORT INFORMATION
  Report Type: Spontaneous
  Country: ES (occurrence: ES)
  Receive Date: 20250605
  Receipt Date: 20250605
  Transmission Date: 20250716
  Serious: Yes (Other)
  Sender: ROCHE
  Company Number: None

PATIENT
  Age: 58 Year
  Sex: Female

DRUGS (4)
  1. TRASTUZUMAB [Suspect]
     Active Substance: TRASTUZUMAB
     Indication: Breast cancer metastatic
     Route: 065
     Dates: start: 20210910
  2. CAPECITABINE [Suspect]
     Active Substance: CAPECITABINE
     Indication: Product used for unknown indication
     Dosage: 1000 MG/M2, 2X/DAY, ON DAYS 1-14/21
     Route: 065
     Dates: start: 20210910
  3. TUCATINIB [Suspect]
     Active Substance: TUCATINIB
     Indication: Breast cancer metastatic
     Dosage: 300 MG/M2, 2X/DAY, DAYS 1-14/21
     Route: 065
     Dates: start: 20210910
  4. TRASTUZUMAB DERUXTECAN [Suspect]
     Active Substance: TRASTUZUMAB DERUXTECAN
     Indication: Product used for unknown indication
     Route: 065

REACTIONS (10)
  - Metastases to central nervous system [Unknown]
  - Malignant neoplasm progression [Unknown]
  - Seizure [Unknown]
  - Diarrhoea [Unknown]
  - Asthenia [Unknown]
  - Memory impairment [Unknown]
  - Behaviour disorder [Unknown]
  - Nausea [Unknown]
  - General physical health deterioration [Unknown]
  - Amnesia [Unknown]

NARRATIVE: CASE EVENT DATE: 20220330
